FAERS Safety Report 12192653 (Version 2)
Quarter: 2016Q1

REPORT INFORMATION
  Report Type: Spontaneous
  Country: US (occurrence: US)
  Receive Date: 20160318
  Receipt Date: 20160330
  Transmission Date: 20160526
  Serious: Yes (Disabling)
  Sender: FDA-Public Use
  Company Number: US-PFIZER INC-2016158723

PATIENT

DRUGS (2)
  1. GABAPENTIN. [Suspect]
     Active Substance: GABAPENTIN
     Indication: BACK INJURY
  2. GABAPENTIN GLENMARK [Suspect]
     Active Substance: GABAPENTIN
     Indication: BACK INJURY
     Dosage: UNK

REACTIONS (4)
  - Depression [Unknown]
  - Rash [Unknown]
  - Anxiety [Unknown]
  - Product use issue [Unknown]
